FAERS Safety Report 6427778-X (Version None)
Quarter: 2009Q4

REPORT INFORMATION
  Report Type: 
  Country: None (occurrence: None)
  Receive Date: 20091105
  Receipt Date: 20091027
  Transmission Date: 20100525
  Serious: Yes (Hospitalization, Other)
  Sender: FDA-Public Use
  Company Number: DE-BAXTER-2009BH015810

PATIENT
  Age: 36 Year
  Sex: Male

DRUGS (5)
  1. HUMAN ALBUMIN IMMUNO 5% [Suspect]
     Indication: PLASMAPHERESIS
     Dosage: GEGEBEN AM 14.07, 16.07, 18.07., 20.07. UND 22.07.09
     Route: 042
     Dates: start: 20090714, end: 20090714
  2. HUMAN ALBUMIN IMMUNO 5% [Suspect]
     Dosage: GEGEBEN AM 14.07, 16.07, 18.07., 20.07. UND 22.07.09
     Route: 042
     Dates: start: 20090716, end: 20090716
  3. HUMAN ALBUMIN IMMUNO 5% [Suspect]
     Dosage: GEGEBEN AM 14.07, 16.07, 18.07., 20.07. UND 22.07.09
     Route: 042
     Dates: start: 20090718, end: 20090718
  4. HUMAN ALBUMIN IMMUNO 5% [Suspect]
     Dosage: GEGEBEN AM 14.07, 16.07, 18.07., 20.07. UND 22.07.09
     Route: 042
     Dates: start: 20090720, end: 20090720
  5. HUMAN ALBUMIN IMMUNO 5% [Suspect]
     Dosage: GEGEBEN AM 14.07, 16.07, 18.07., 20.07. UND 22.07.09
     Route: 042
     Dates: start: 20090722, end: 20090722

REACTIONS (1)
  - HEPATITIS E [None]
